FAERS Safety Report 9304439 (Version 1)
Quarter: 2013Q2

REPORT INFORMATION
  Report Type: Spontaneous
  Country: ES (occurrence: ES)
  Receive Date: 20130522
  Receipt Date: 20130522
  Transmission Date: 20140414
  Serious: Yes (Hospitalization)
  Sender: FDA-Public Use
  Company Number: ES-US-EMD SERONO, INC.-E2B_7212751

PATIENT
  Age: 31 Year
  Sex: Female

DRUGS (4)
  1. OVITRELLE [Suspect]
     Indication: ASSISTED FERTILISATION
     Route: 065
     Dates: start: 20130308, end: 20130401
  2. PROGESTERONE [Suspect]
     Indication: ASSISTED FERTILISATION
     Route: 065
     Dates: start: 20130308, end: 20130401
  3. GANIRELIX [Suspect]
     Indication: ASSISTED FERTILISATION
     Route: 065
     Dates: start: 20130308, end: 20130401
  4. FOLLITROPIN BETA [Suspect]
     Indication: ASSISTED FERTILISATION
     Route: 065
     Dates: start: 20130308, end: 20130401

REACTIONS (1)
  - Ovarian abscess [Recovered/Resolved]
